FAERS Safety Report 8969448 (Version 2)
Quarter: 2013Q2

REPORT INFORMATION
  Report Type: Spontaneous
  Country: GB (occurrence: GB)
  Receive Date: 20121217
  Receipt Date: 20130403
  Transmission Date: 20140414
  Serious: Yes (Other)
  Sender: FDA-Public Use
  Company Number: PHHY2012GB114456

PATIENT
  Age: 55 Year
  Sex: Male

DRUGS (7)
  1. SIMVASTATIN [Suspect]
     Indication: BLOOD CHOLESTEROL INCREASED
     Dosage: 40 MG, UNK
     Route: 048
     Dates: start: 20110613, end: 20120925
  2. AMLODIPINE [Suspect]
     Indication: HYPERTENSION
     Dosage: 10 MG, UNK
     Route: 048
     Dates: end: 20120711
  3. RAMIPRIL [Suspect]
     Indication: HYPERTENSION
     Route: 048
     Dates: end: 20120711
  4. RAMIPRIL [Suspect]
     Indication: HYPERTENSION
  5. LOSARTAN [Suspect]
     Indication: BLOOD PRESSURE
     Dosage: 100 MG, UNK
     Route: 048
  6. LERCANIDIPINE [Suspect]
     Indication: BLOOD PRESSURE
     Dosage: 20 MG, UNK
     Route: 048
  7. PRAVASTATIN [Suspect]
     Dosage: 40 MG, UNK
     Dates: end: 20121206

REACTIONS (16)
  - Confusional state [Unknown]
  - Osteoarthritis [Unknown]
  - Gait disturbance [Unknown]
  - Myalgia [Unknown]
  - Dysstasia [Unknown]
  - Polymyositis [Unknown]
  - Depression [Unknown]
  - Feeling abnormal [Unknown]
  - Mental impairment [Unknown]
  - Nightmare [Unknown]
  - Depressed mood [Unknown]
  - Blood pressure increased [Unknown]
  - Dyspnoea [Unknown]
  - Fatigue [Unknown]
  - Cough [Unknown]
  - Drug interaction [Unknown]
